FAERS Safety Report 4279514-3 (Version None)
Quarter: 2004Q1

REPORT INFORMATION
  Report Type: 
  Country: None (occurrence: None)
  Receive Date: 20040126
  Receipt Date: 20040126
  Transmission Date: 20041129
  Serious: Yes (Disabling)
  Sender: FDA-Public Use
  Company Number: None

PATIENT
  Sex: Female
  Weight: 88.905 kg

DRUGS (2)
  1. EFFEXOR [Suspect]
     Indication: HEADACHE
     Dosage: 75MG  QD  ORAL
     Route: 048
     Dates: start: 20030101, end: 20040119
  2. EFFEXOR [Suspect]
     Indication: MIGRAINE
     Dosage: 75MG  QD  ORAL
     Route: 048
     Dates: start: 20030101, end: 20040119

REACTIONS (11)
  - ANGER [None]
  - CONDITION AGGRAVATED [None]
  - CRYING [None]
  - DISTURBANCE IN ATTENTION [None]
  - DRUG WITHDRAWAL SYNDROME [None]
  - FEELING ABNORMAL [None]
  - HANGOVER [None]
  - MIGRAINE [None]
  - MOOD SWINGS [None]
  - TINNITUS [None]
  - WEIGHT INCREASED [None]
